FAERS Safety Report 19522512 (Version 1)
Quarter: 2021Q3

REPORT INFORMATION
  Report Type: Spontaneous
  Country: US (occurrence: US)
  Receive Date: 20210712
  Receipt Date: 20210712
  Transmission Date: 20211014
  Serious: Yes (Death)
  Sender: FDA-Public Use
  Company Number: US-ENDO PHARMACEUTICALS INC-2021-004308

PATIENT
  Age: 75 Year
  Sex: Female

DRUGS (2)
  1. RANITIDINE. [Suspect]
     Active Substance: RANITIDINE
     Indication: HIATUS HERNIA
     Dosage: 300 MG, DAILY
     Route: 065
     Dates: start: 200901, end: 201902
  2. RANITIDINE HYDROCHLORIDE. [Suspect]
     Active Substance: RANITIDINE HYDROCHLORIDE
     Indication: HIATUS HERNIA
     Dosage: 300 MG, DAILY
     Route: 065
     Dates: start: 200901, end: 201902

REACTIONS (2)
  - Colorectal cancer stage IV [Fatal]
  - Breast cancer stage I [Fatal]

NARRATIVE: CASE EVENT DATE: 20120701
